FAERS Safety Report 4808531-7 (Version None)
Quarter: 2005Q4

REPORT INFORMATION
  Report Type: 
  Country: None (occurrence: None)
  Receive Date: 20051025
  Receipt Date: 20051013
  Transmission Date: 20060501
  Serious: Yes (Death)
  Sender: FDA-Public Use
  Company Number: AT-NOVOPROD-247792

PATIENT
  Age: 15 Day
  Sex: Female
  Weight: 3 kg

DRUGS (8)
  1. NOVOSEVEN [Suspect]
     Indication: HAEMORRHAGE
     Dosage: 90 UG/KG, UNK
     Route: 042
  2. PROTAMINE SULFATE [Concomitant]
     Dosage: 7300 IU, UNK
  3. FRESH FROZEN PLASMA [Concomitant]
     Dosage: 5 U, UNK
  4. PLATELETS [Concomitant]
     Dosage: 3 U, UNK
  5. BLOOD CELLS, PACKED HUMAN [Concomitant]
     Dosage: 5 U, UNK
  6. BEBULIN VH IMMUNO [Concomitant]
     Dosage: 1200 IU, UNK
  7. ATNATIV [Concomitant]
  8. FIBRINOGEN [Concomitant]
     Dosage: 2 G, UNK

REACTIONS (2)
  - ARTERIAL THROMBOSIS [None]
  - POST PROCEDURAL COMPLICATION [None]
